FAERS Safety Report 15598422 (Version 1)
Quarter: 2018Q4

REPORT INFORMATION
  Report Type: Spontaneous
  Country: US (occurrence: US)
  Receive Date: 20181107
  Receipt Date: 20181107
  Transmission Date: 20190205
  Serious: Yes (Other)
  Sender: FDA-Public Use
  Company Number: None

PATIENT
  Age: 61 Year
  Sex: Female
  Weight: 75.3 kg

DRUGS (4)
  1. GADOTERATE MEGLUMINE [Suspect]
     Active Substance: GADOTERATE MEGLUMINE
     Indication: NUCLEAR MAGNETIC RESONANCE IMAGING
     Dates: start: 20180709, end: 20180709
  2. LOETHIN [Concomitant]
  3. COLLAGEN [Concomitant]
     Active Substance: COLLAGEN
  4. CENTRUM SILVER FOR WOMEN [Concomitant]
     Active Substance: MINERALS\VITAMINS

REACTIONS (7)
  - Abdominal discomfort [None]
  - Malaise [None]
  - Gait disturbance [None]
  - Amnesia [None]
  - Pain in extremity [None]
  - Dizziness [None]
  - Burning sensation [None]

NARRATIVE: CASE EVENT DATE: 20180709
